FAERS Safety Report 18478003 (Version 3)
Quarter: 2020Q4

REPORT INFORMATION
  Report Type: Other
  Country: KR (occurrence: KR)
  Receive Date: 20201108
  Receipt Date: 20201116
  Transmission Date: 20210114
  Serious: Yes (Hospitalization, Other)
  Sender: FDA-Public Use
  Company Number: KR-ROCHE-2709488

PATIENT
  Age: 61 Year
  Sex: Female

DRUGS (18)
  1. AXID [Concomitant]
     Active Substance: NIZATIDINE
     Indication: JOINT DISLOCATION
     Dates: start: 20200603
  2. FEROBA YOU SR [Concomitant]
     Indication: ANAEMIA
     Dates: start: 20191010
  3. BANAN [Concomitant]
     Active Substance: CEFPODOXIME PROXETIL
     Indication: PNEUMONIA
     Route: 048
     Dates: start: 20180818, end: 20180825
  4. SHINBARO [Concomitant]
     Indication: JOINT DISLOCATION
     Route: 048
     Dates: start: 20200603
  5. GASTERIX [Concomitant]
     Indication: GASTROOESOPHAGEAL REFLUX DISEASE
     Route: 048
     Dates: start: 20180915, end: 20190104
  6. DEXAMETHASONE. [Concomitant]
     Active Substance: DEXAMETHASONE
     Route: 048
     Dates: start: 20180806, end: 20180914
  7. CEROPHYL [Concomitant]
     Indication: PNEUMONIA
     Route: 048
     Dates: start: 20181225, end: 20190104
  8. SEPTRIN [Concomitant]
     Active Substance: SULFAMETHOXAZOLE\TRIMETHOPRIM
     Indication: PNEUMONIA
     Dosage: 1/TAB
     Route: 048
     Dates: start: 20180916, end: 20190104
  9. AZEPTIN [AZELASTINE] [Concomitant]
     Indication: RHINITIS ALLERGIC
     Route: 048
     Dates: start: 20181225, end: 20190104
  10. BANAN [Concomitant]
     Active Substance: CEFPODOXIME PROXETIL
     Indication: URINARY TRACT INFECTION
  11. DEXAMETHASONE. [Concomitant]
     Active Substance: DEXAMETHASONE
     Indication: BRAIN OEDEMA
     Route: 048
     Dates: start: 20180703, end: 20180806
  12. STILNOX [Concomitant]
     Active Substance: ZOLPIDEM TARTRATE
     Indication: SLEEP DISORDER
     Route: 048
     Dates: end: 20181222
  13. PRIVITUSS [Concomitant]
     Indication: PNEUMONIA
     Route: 048
     Dates: start: 20181226, end: 20190104
  14. DEXAMETHASONE. [Concomitant]
     Active Substance: DEXAMETHASONE
     Indication: OEDEMA
     Route: 042
     Dates: start: 20180916, end: 20190104
  15. ALECTINIB. [Suspect]
     Active Substance: ALECTINIB
     Indication: NON-SMALL CELL LUNG CANCER METASTATIC
     Route: 048
     Dates: start: 20171117
  16. CELEBREX [Concomitant]
     Active Substance: CELECOXIB
     Indication: JOINT DISLOCATION
     Route: 048
     Dates: start: 20200603
  17. URSA [Concomitant]
     Active Substance: URSODIOL
     Indication: HEPATITIS
     Route: 048
     Dates: start: 20171214
  18. DUPHALAC [Concomitant]
     Active Substance: LACTULOSE
     Indication: CONSTIPATION
     Route: 048
     Dates: start: 20180921, end: 20190104

REACTIONS (7)
  - Constipation [Recovering/Resolving]
  - Hemiplegia [Recovering/Resolving]
  - Pneumonia [Recovering/Resolving]
  - Urinary tract infection [Recovered/Resolved]
  - Hepatitis [Recovering/Resolving]
  - Liver disorder [Recovering/Resolving]
  - Brain oedema [Recovered/Resolved]

NARRATIVE: CASE EVENT DATE: 20171214
